FAERS Safety Report 14915270 (Version 2)
Quarter: 2018Q3

REPORT INFORMATION
  Report Type: Spontaneous
  Country: AT (occurrence: AT)
  Receive Date: 20180518
  Receipt Date: 20180911
  Transmission Date: 20181010
  Serious: Yes (Other)
  Sender: FDA-Public Use
  Company Number: AT-TEVA-2018-AT-894048

PATIENT

DRUGS (2)
  1. FENTANYL. [Suspect]
     Active Substance: FENTANYL
     Indication: EPIDURAL ANAESTHESIA
     Dosage: DOSAGE FORM: SOLUTION
     Route: 064
  2. FENTANYL. [Suspect]
     Active Substance: FENTANYL
     Indication: ANALGESIC THERAPY

REACTIONS (4)
  - Drug dispensing error [Unknown]
  - Accidental overdose [Unknown]
  - Foetal heart rate decreased [Unknown]
  - Foetal exposure during pregnancy [Unknown]
